FAERS Safety Report 20217966 (Version 1)
Quarter: 2021Q4

REPORT INFORMATION
  Report Type: Spontaneous
  Country: US (occurrence: US)
  Receive Date: 20211222
  Receipt Date: 20211222
  Transmission Date: 20220303
  Serious: No
  Sender: FDA-Public Use
  Company Number: US-BioHaven Pharmaceuticals-2021BHV000272

PATIENT
  Sex: Female
  Weight: 66.738 kg

DRUGS (8)
  1. NURTEC ODT [Suspect]
     Active Substance: RIMEGEPANT SULFATE
     Indication: Migraine
  2. BENADRYL [Concomitant]
     Active Substance: DIPHENHYDRAMINE HYDROCHLORIDE
     Indication: Headache
  3. UNSPECIFIED MEDICATION FOR HER BLOOD PRESSURE [Concomitant]
     Indication: Blood pressure measurement
  4. UNSPECIFIED MEDICATION FOR ALLERGIES [Concomitant]
     Indication: Hypersensitivity
  5. UNSPECIFIED MEDICATION FOR HEARTBURN [Concomitant]
     Indication: Dyspepsia
  6. UNSPECIFIED MEDICATION FOR SLEEP [Concomitant]
     Indication: Insomnia
  7. IBUPROFEN [Concomitant]
     Active Substance: IBUPROFEN
     Indication: Headache
  8. YOUNG LIVING OILS [Concomitant]

REACTIONS (3)
  - Headache [Unknown]
  - Headache [Unknown]
  - Emotional distress [Unknown]
